FAERS Safety Report 23577849 (Version 2)
Quarter: 2024Q1

REPORT INFORMATION
  Report Type: Spontaneous
  Country: BR (occurrence: BR)
  Receive Date: 20240228
  Receipt Date: 20240314
  Transmission Date: 20240410
  Serious: Yes (Hospitalization, Disabling)
  Sender: FDA-Public Use
  Company Number: BR-LEO Pharma-368051

PATIENT
  Age: 51 Year
  Sex: Male

DRUGS (1)
  1. BRODALUMAB [Suspect]
     Active Substance: BRODALUMAB
     Indication: Psoriasis
     Dosage: 210 MG ONCE A WEEK FOR 3 WEEKS AND THEN 210 MG EVERY TWO WEEKS
     Route: 058

REACTIONS (6)
  - Rib fracture [Unknown]
  - Pulmonary pain [Unknown]
  - Cough [Unknown]
  - Rib fracture [Recovering/Resolving]
  - Surgery [Recovering/Resolving]
  - Nasopharyngitis [Unknown]

NARRATIVE: CASE EVENT DATE: 20240201
